FAERS Safety Report 24814927 (Version 1)
Quarter: 2025Q1

REPORT INFORMATION
  Report Type: Spontaneous
  Country: PR (occurrence: PR)
  Receive Date: 20250107
  Receipt Date: 20250107
  Transmission Date: 20250408
  Serious: Yes (Other)
  Sender: MYLAN
  Company Number: PR-MYLANLABS-2024M1117704

PATIENT
  Sex: Male

DRUGS (2)
  1. SUCRALFATE [Suspect]
     Active Substance: SUCRALFATE
     Indication: Gastritis
     Route: 065
  2. HYDROXYZINE [Suspect]
     Active Substance: HYDROXYZINE HYDROCHLORIDE
     Indication: Gastritis
     Route: 065

REACTIONS (1)
  - Drug ineffective [Unknown]
